FAERS Safety Report 16385865 (Version 1)
Quarter: 2019Q2

REPORT INFORMATION
  Report Type: Spontaneous
  Country: US (occurrence: US)
  Receive Date: 20190603
  Receipt Date: 20190603
  Transmission Date: 20190711
  Serious: No
  Sender: FDA-Public Use
  Company Number: US-GALDERMA-US18030437

PATIENT
  Age: 13 Year
  Sex: Female

DRUGS (6)
  1. PROACTIV MD DEEP CLEANSING FACE WASH [Concomitant]
     Active Substance: COSMETICS
     Route: 061
     Dates: start: 20180709, end: 20180715
  2. PROACTIV MD ADAPALENE ACNE TREATMENT [Suspect]
     Active Substance: ADAPALENE
     Indication: PRODUCT USED FOR UNKNOWN INDICATION
     Dosage: 0.1%
     Route: 061
     Dates: start: 20180709, end: 20180715
  3. HYDRATING CREAM [Concomitant]
  4. PROACTIV SOLUTION BLACKHEAD DISSOLVING [Concomitant]
     Active Substance: SALICYLIC ACID
     Route: 061
     Dates: start: 20180709, end: 20180715
  5. PROACTIV MD DAILY OIL CONTROL SPF 30 [Suspect]
     Active Substance: AVOBENZONE\OCTISALATE\OCTOCRYLENE
     Indication: PRODUCT USED FOR UNKNOWN INDICATION
     Route: 061
     Dates: start: 20180709, end: 20180715
  6. PROACTIV DEEP CLEANSING WASH [Concomitant]
     Active Substance: SALICYLIC ACID
     Route: 061
     Dates: start: 20180709, end: 20180715

REACTIONS (2)
  - Skin exfoliation [Recovering/Resolving]
  - Skin burning sensation [Recovering/Resolving]

NARRATIVE: CASE EVENT DATE: 20180712
